FAERS Safety Report 6230718-X (Version None)
Quarter: 2009Q2

REPORT INFORMATION
  Report Type: 
  Country: None (occurrence: None)
  Receive Date: 20090616
  Receipt Date: 20090605
  Transmission Date: 20091009
  Serious: Yes (Other)
  Sender: FDA-Public Use
  Company Number: GB-JNJFOC-20090402363

PATIENT
  Sex: Female

DRUGS (12)
  1. REMICADE [Suspect]
     Indication: RHEUMATOID ARTHRITIS
     Route: 042
  2. ETANERCEPT [Suspect]
     Indication: RHEUMATOID ARTHRITIS
  3. METHOTREXATE [Concomitant]
  4. METHOTREXATE [Concomitant]
     Indication: RHEUMATOID ARTHRITIS
  5. PREDNISOLONE [Concomitant]
  6. ATENOLOL [Concomitant]
  7. CALCICHEW [Concomitant]
  8. CODEINE PHOSPHATE [Concomitant]
  9. ETIDRONATE DISODIUM [Concomitant]
  10. FOLIC ACID [Concomitant]
  11. LACTULOSE [Concomitant]
  12. ROFECOXIB [Concomitant]

REACTIONS (2)
  - FEMORAL NECK FRACTURE [None]
  - SMALL CELL LUNG CANCER EXTENSIVE STAGE [None]
